FAERS Safety Report 23611778 (Version 1)
Quarter: 2024Q1

REPORT INFORMATION
  Report Type: Spontaneous
  Country: IT (occurrence: IT)
  Receive Date: 20240308
  Receipt Date: 20240308
  Transmission Date: 20240410
  Serious: Yes (Other)
  Sender: FDA-Public Use
  Company Number: None

PATIENT
  Age: 78 Year
  Sex: Male

DRUGS (8)
  1. CYCLOPHOSPHAMIDE [Suspect]
     Active Substance: CYCLOPHOSPHAMIDE
     Indication: Diffuse large B-cell lymphoma
     Dosage: UNK
     Route: 065
  2. DOXORUBICIN [Suspect]
     Active Substance: DOXORUBICIN
     Indication: Diffuse large B-cell lymphoma
     Dosage: UNK
     Route: 065
  3. PREDNISONE [Suspect]
     Active Substance: PREDNISONE
     Indication: Diffuse large B-cell lymphoma
     Dosage: UNK
     Route: 065
  4. RITUXIMAB [Suspect]
     Active Substance: RITUXIMAB
     Indication: Diffuse large B-cell lymphoma
     Dosage: UNK
     Route: 065
  5. VINCRISTINE [Suspect]
     Active Substance: VINCRISTINE
     Indication: Diffuse large B-cell lymphoma
     Dosage: UNK
     Route: 065
  6. ELASOMERAN [Concomitant]
     Active Substance: ELASOMERAN
     Dosage: VACCINE DOSE 28 DAYS LATER
     Route: 065
     Dates: start: 202103
  7. ELASOMERAN [Concomitant]
     Active Substance: ELASOMERAN
     Indication: Immunisation
     Dosage: VACCINE DOSE BETWEEN DECEMBER 2021 AND JANUARY 2022
     Route: 065
     Dates: start: 202103
  8. ELASOMERAN [Concomitant]
     Active Substance: ELASOMERAN
     Dosage: VACCINE DOSE IN MARCH 2021
     Route: 065
     Dates: start: 202103

REACTIONS (3)
  - Breakthrough COVID-19 [Unknown]
  - Vaccination failure [Unknown]
  - Product use issue [Unknown]
